FAERS Safety Report 12310075 (Version 1)
Quarter: 2016Q2

REPORT INFORMATION
  Report Type: Spontaneous
  Country: US (occurrence: None)
  Receive Date: 20160426
  Receipt Date: 20160426
  Transmission Date: 20160815
  Serious: Yes (Other)
  Sender: FDA-Public Use
  Company Number: None

PATIENT
  Age: 68 Year
  Sex: Male
  Weight: 100 kg

DRUGS (4)
  1. SOTALOL. [Suspect]
     Active Substance: SOTALOL
     Indication: SURGERY
     Route: 048
     Dates: start: 20160415, end: 20160418
  2. SOTALOL. [Suspect]
     Active Substance: SOTALOL
     Indication: CHRONIC LEFT VENTRICULAR FAILURE
     Route: 048
     Dates: start: 20160415, end: 20160418
  3. SOTALOL. [Suspect]
     Active Substance: SOTALOL
     Indication: VENTRICULAR EXTRASYSTOLES
     Route: 048
     Dates: start: 20160415, end: 20160418
  4. SOTALOL. [Suspect]
     Active Substance: SOTALOL
     Indication: CARDIOVASCULAR DISORDER
     Route: 048
     Dates: start: 20160415, end: 20160418

REACTIONS (1)
  - Electrocardiogram QT prolonged [None]

NARRATIVE: CASE EVENT DATE: 20160419
